FAERS Safety Report 17985377 (Version 2)
Quarter: 2020Q3

REPORT INFORMATION
  Report Type: Spontaneous
  Country: GB (occurrence: GB)
  Receive Date: 20200706
  Receipt Date: 20200728
  Transmission Date: 20201103
  Serious: Yes (Life-Threatening, Other)
  Sender: FDA-Public Use
  Company Number: GB-DEXPHARM-20200564

PATIENT
  Age: 64 Year
  Sex: Male
  Weight: 90 kg

DRUGS (6)
  1. FELODIPINE. [Concomitant]
     Active Substance: FELODIPINE
     Dates: start: 20200312
  2. RANITIDINE. [Concomitant]
     Active Substance: RANITIDINE
     Dates: start: 20200311, end: 20200407
  3. BISOPROLOL [Concomitant]
     Active Substance: BISOPROLOL
     Dates: start: 20200312
  4. OMEPRAZOLE. [Suspect]
     Active Substance: OMEPRAZOLE
     Indication: DYSPNOEA
     Route: 048
     Dates: start: 20200418, end: 20200418
  5. LOSARTAN. [Concomitant]
     Active Substance: LOSARTAN
     Dates: start: 20200312
  6. EPLERENONE. [Concomitant]
     Active Substance: EPLERENONE
     Dates: start: 20200312

REACTIONS (1)
  - Bronchospasm [Recovering/Resolving]

NARRATIVE: CASE EVENT DATE: 20200418
